FAERS Safety Report 10791325 (Version 1)
Quarter: 2015Q1

REPORT INFORMATION
  Report Type: Spontaneous
  Country: US (occurrence: US)
  Receive Date: 20150213
  Receipt Date: 20150213
  Transmission Date: 20150721
  Serious: No
  Sender: FDA-Public Use
  Company Number: US-GLAXOSMITHKLINE-A1081419A

PATIENT

DRUGS (5)
  1. MELATONIN [Concomitant]
     Active Substance: MELATONIN
  2. VALIUM [Concomitant]
     Active Substance: DIAZEPAM
  3. LAMICTAL [Suspect]
     Active Substance: LAMOTRIGINE
     Indication: ANXIETY
     Route: 048
     Dates: start: 2009, end: 20140714
  4. ADVIL [Concomitant]
     Active Substance: IBUPROFEN
  5. LAMICTAL [Suspect]
     Active Substance: LAMOTRIGINE
     Indication: DEPRESSION

REACTIONS (6)
  - Dizziness [Unknown]
  - Malaise [Unknown]
  - Disorientation [Unknown]
  - Nausea [Unknown]
  - Feeling abnormal [Unknown]
  - Hangover [Unknown]

NARRATIVE: CASE EVENT DATE: 2009
